FAERS Safety Report 12846712 (Version 7)
Quarter: 2019Q3

REPORT INFORMATION
  Report Type: Spontaneous
  Country: US (occurrence: US)
  Receive Date: 20161014
  Receipt Date: 20190718
  Transmission Date: 20191004
  Serious: Yes (Other)
  Sender: FDA-Public Use
  Company Number: US-PFIZER INC-2016478532

PATIENT
  Age: 51 Year
  Sex: Female
  Weight: 99 kg

DRUGS (2)
  1. IBRANCE [Suspect]
     Active Substance: PALBOCICLIB
     Indication: BREAST CANCER FEMALE
     Dosage: 125 MG, CYCLIC (DAILY, 21 DAYS, FOLLOWED BY A 7 DAY BREAK, FOR A 28 DAY CYCLE)
     Route: 048
     Dates: start: 20160924
  2. LETROZOLE. [Concomitant]
     Active Substance: LETROZOLE
     Dosage: UNK
     Dates: start: 20160924

REACTIONS (8)
  - Dysphagia [Unknown]
  - Mouth ulceration [Unknown]
  - Pneumothorax [Unknown]
  - Weight decreased [Unknown]
  - Constipation [Recovered/Resolved]
  - Nausea [Unknown]
  - Tearfulness [Unknown]
  - Pain in jaw [Unknown]

NARRATIVE: CASE EVENT DATE: 2016
